FAERS Safety Report 13725298 (Version 2)
Quarter: 2017Q3

REPORT INFORMATION
  Report Type: Spontaneous
  Country: US (occurrence: US)
  Receive Date: 20170706
  Receipt Date: 20170822
  Transmission Date: 20171127
  Serious: No
  Sender: FDA-Public Use
  Company Number: US-PFIZER INC-2017289085

PATIENT
  Age: 74 Year
  Sex: Female

DRUGS (1)
  1. LYRICA [Suspect]
     Active Substance: PREGABALIN
     Indication: CANCER PAIN
     Dosage: 75 MG, 1X/DAY
     Dates: start: 201609

REACTIONS (2)
  - Product use in unapproved indication [Unknown]
  - Joint swelling [Unknown]

NARRATIVE: CASE EVENT DATE: 201609
